FAERS Safety Report 13896268 (Version 1)
Quarter: 2017Q3

REPORT INFORMATION
  Report Type: Spontaneous
  Country: US (occurrence: US)
  Receive Date: 20170822
  Receipt Date: 20170822
  Transmission Date: 20171127
  Serious: Yes (Other)
  Sender: FDA-Public Use
  Company Number: None

PATIENT
  Age: 45 Year
  Sex: Female
  Weight: 51.75 kg

DRUGS (5)
  1. SYNTHROID [Concomitant]
     Active Substance: LEVOTHYROXINE SODIUM
  2. ALPRAZOLAM. [Concomitant]
     Active Substance: ALPRAZOLAM
  3. VITAMIN D3 [Concomitant]
     Active Substance: CHOLECALCIFEROL
  4. ROBAXIN [Concomitant]
     Active Substance: METHOCARBAMOL
  5. LEVOTHYROXINE. [Suspect]
     Active Substance: LEVOTHYROXINE
     Indication: HYPOTHYROIDISM
     Dosage: ?          QUANTITY:30 TABLET(S);?
     Route: 048

REACTIONS (20)
  - Aspartate aminotransferase increased [None]
  - Blood thyroid stimulating hormone increased [None]
  - Blood thyroid stimulating hormone decreased [None]
  - Fatigue [None]
  - Abdominal pain [None]
  - Blood bilirubin increased [None]
  - Arthralgia [None]
  - Thyroid function test abnormal [None]
  - Agitation [None]
  - Tri-iodothyronine decreased [None]
  - Headache [None]
  - Asthenia [None]
  - Pain [None]
  - Gastric disorder [None]
  - Nausea [None]
  - Irritable bowel syndrome [None]
  - Palpitations [None]
  - Hyperhidrosis [None]
  - Alanine aminotransferase increased [None]
  - Hypersensitivity [None]

NARRATIVE: CASE EVENT DATE: 20170601
